FAERS Safety Report 20687170 (Version 1)
Quarter: 2022Q2

REPORT INFORMATION
  Report Type: Spontaneous
  Country: CA (occurrence: DE)
  Receive Date: 20220407
  Receipt Date: 20220407
  Transmission Date: 20220721
  Serious: Yes (Death, Disabling, Other)
  Sender: FDA-Public Use
  Company Number: CA-BRISTOL-MYERS SQUIBB COMPANY-BMS-2021-043653

PATIENT
  Age: 80 Year
  Sex: Male
  Weight: 69 kg

DRUGS (446)
  1. WARFARIN SODIUM [Suspect]
     Active Substance: WARFARIN SODIUM
     Indication: Thrombosis
     Route: 048
  2. WARFARIN SODIUM [Suspect]
     Active Substance: WARFARIN SODIUM
     Indication: Intentional product misuse
     Route: 048
  3. WARFARIN SODIUM [Suspect]
     Active Substance: WARFARIN SODIUM
     Route: 048
  4. WARFARIN SODIUM [Suspect]
     Active Substance: WARFARIN SODIUM
     Route: 048
  5. ACETAMINOPHEN [Suspect]
     Active Substance: ACETAMINOPHEN
     Indication: Intentional product misuse
     Dosage: 650 MG, QD
     Route: 048
  6. ACETAMINOPHEN [Suspect]
     Active Substance: ACETAMINOPHEN
     Indication: Analgesic therapy
     Dosage: 650 MG, QD
     Route: 048
  7. ACETAMINOPHEN [Suspect]
     Active Substance: ACETAMINOPHEN
     Indication: Off label use
  8. CALCIUM CARBONATE\ERGOCALCIFEROL [Suspect]
     Active Substance: CALCIUM CARBONATE\ERGOCALCIFEROL
     Indication: Product used for unknown indication
     Dosage: UNK
     Route: 065
  9. PYRIDOXINE HYDROCHLORIDE [Suspect]
     Active Substance: PYRIDOXINE HYDROCHLORIDE
     Indication: Vitamin supplementation
     Dosage: UNK UNK, QID
     Route: 048
  10. PYRIDOXINE HYDROCHLORIDE [Suspect]
     Active Substance: PYRIDOXINE HYDROCHLORIDE
     Dosage: UNK
     Route: 048
  11. PYRIDOXINE HYDROCHLORIDE [Suspect]
     Active Substance: PYRIDOXINE HYDROCHLORIDE
     Dosage: UNK
     Route: 065
  12. PYRIDOXINE HYDROCHLORIDE [Suspect]
     Active Substance: PYRIDOXINE HYDROCHLORIDE
     Dosage: UNK
     Route: 048
  13. PYRIDOXINE HYDROCHLORIDE [Suspect]
     Active Substance: PYRIDOXINE HYDROCHLORIDE
     Dosage: UNK UNK, QD
     Route: 048
  14. PYRIDOXINE HYDROCHLORIDE [Suspect]
     Active Substance: PYRIDOXINE HYDROCHLORIDE
     Dosage: UNK UNK, QID
     Route: 048
  15. LUTEIN [Suspect]
     Active Substance: LUTEIN
     Indication: Nutritional supplementation
     Dosage: 12.5 GRAM, AS NECESSARY
     Route: 042
  16. LUTEIN [Suspect]
     Active Substance: LUTEIN
     Indication: Intentional product misuse
  17. LUTEIN [Suspect]
     Active Substance: LUTEIN
     Indication: Off label use
  18. DEXTROSE [Suspect]
     Active Substance: DEXTROSE
     Indication: Nutritional supplementation
     Dosage: 12.5 MG, QD (ONCE A DAY)
     Route: 042
  19. DEXTROSE [Suspect]
     Active Substance: DEXTROSE
     Indication: Off label use
     Dosage: 12.5 G, PRN
     Route: 042
  20. DEXTROSE [Suspect]
     Active Substance: DEXTROSE
     Indication: Product used for unknown indication
     Dosage: 12.5 G, PRN
     Route: 042
  21. DEXTROSE [Suspect]
     Active Substance: DEXTROSE
     Indication: Intentional product misuse
     Dosage: 12.5 G, PRN
     Route: 042
  22. DEXTROSE [Suspect]
     Active Substance: DEXTROSE
     Dosage: 12.5 MG, QD
     Route: 042
  23. DEXTROSE [Suspect]
     Active Substance: DEXTROSE
     Dosage: 12.5 G
     Route: 065
  24. PHYTONADIONE [Suspect]
     Active Substance: PHYTONADIONE
     Indication: Off label use
     Dosage: 5 MG, PRN
     Route: 042
  25. PHYTONADIONE [Suspect]
     Active Substance: PHYTONADIONE
     Indication: Vitamin supplementation
     Dosage: 5 MG,AS NECESSARY
     Route: 017
  26. PHYTONADIONE [Suspect]
     Active Substance: PHYTONADIONE
     Dosage: 5 MILLIGRAM, QD
     Route: 017
  27. PHYTONADIONE [Suspect]
     Active Substance: PHYTONADIONE
     Route: 065
  28. DEXTROSE AND SODIUM CHLORIDE [Suspect]
     Active Substance: DEXTROSE MONOHYDRATE\SODIUM CHLORIDE
     Indication: Nutritional supplementation
     Dosage: 12.5 G, QD
     Route: 042
  29. DEXTROSE AND SODIUM CHLORIDE [Suspect]
     Active Substance: DEXTROSE MONOHYDRATE\SODIUM CHLORIDE
     Dosage: 12.5 MG, AS NECESSARY
     Route: 042
  30. POTASSIUM CHLORATE [Suspect]
     Active Substance: POTASSIUM CHLORATE
     Indication: Product used for unknown indication
     Dosage: UNK
     Route: 065
  31. ALBUTEROL [Suspect]
     Active Substance: ALBUTEROL
     Indication: Chronic obstructive pulmonary disease
     Dosage: 4 DF, Q6HR
  32. ALBUTEROL [Suspect]
     Active Substance: ALBUTEROL
     Dosage: UNK, QD
  33. ALBUTEROL [Suspect]
     Active Substance: ALBUTEROL
     Dosage: 1 DF, Q6HR
  34. DOBUTAMINE [Suspect]
     Active Substance: DOBUTAMINE HYDROCHLORIDE
     Indication: Off label use
     Dosage: UNK
     Route: 042
  35. DOBUTAMINE [Suspect]
     Active Substance: DOBUTAMINE HYDROCHLORIDE
     Indication: Cardiogenic shock
  36. DOBUTAMINE [Suspect]
     Active Substance: DOBUTAMINE HYDROCHLORIDE
     Indication: Product used for unknown indication
  37. LANTHANUM CARBONATE [Suspect]
     Active Substance: LANTHANUM CARBONATE
     Indication: Product used for unknown indication
     Dosage: 550 MG, QD
     Route: 048
  38. CALCITRIOL [Suspect]
     Active Substance: CALCITRIOL
     Indication: Product used for unknown indication
     Dosage: 0.25 UG, QD
     Route: 048
  39. CALCITRIOL [Suspect]
     Active Substance: CALCITRIOL
     Indication: Vitamin D
     Dosage: 0.25 UG, QD (ONCE A DAY)
     Route: 048
  40. CALCITRIOL [Suspect]
     Active Substance: CALCITRIOL
     Dosage: UNK
     Route: 065
  41. CARBOHYDRATES [Suspect]
     Active Substance: CARBOHYDRATES
     Indication: Vitamin supplementation
     Dosage: 5 MG
     Route: 042
  42. IPRATROPIUM BROMIDE [Suspect]
     Active Substance: IPRATROPIUM BROMIDE
     Indication: Sleep disorder therapy
     Dosage: UNK UNK, QD
     Route: 055
  43. IPRATROPIUM BROMIDE [Suspect]
     Active Substance: IPRATROPIUM BROMIDE
     Indication: Dyspnoea
     Dosage: UNK, Q6HR
     Route: 055
  44. IPRATROPIUM BROMIDE [Suspect]
     Active Substance: IPRATROPIUM BROMIDE
     Indication: Off label use
     Dosage: 1 DF, Q6HR
     Route: 055
  45. IPRATROPIUM BROMIDE [Suspect]
     Active Substance: IPRATROPIUM BROMIDE
     Indication: Intentional product misuse
     Dosage: 1 DF, QD
     Route: 065
  46. IPRATROPIUM BROMIDE [Suspect]
     Active Substance: IPRATROPIUM BROMIDE
     Dosage: 4 UNK, QD
     Route: 055
  47. IPRATROPIUM BROMIDE [Suspect]
     Active Substance: IPRATROPIUM BROMIDE
     Dosage: UNK UNK, QID
     Route: 065
  48. IPRATROPIUM BROMIDE [Suspect]
     Active Substance: IPRATROPIUM BROMIDE
     Dosage: UNK UNK, QID
     Route: 050
  49. IPRATROPIUM BROMIDE [Suspect]
     Active Substance: IPRATROPIUM BROMIDE
     Dosage: UNK, QD
     Route: 055
  50. IPRATROPIUM BROMIDE [Suspect]
     Active Substance: IPRATROPIUM BROMIDE
     Dosage: 1 DF, Q8HR
     Route: 050
  51. IPRATROPIUM BROMIDE [Suspect]
     Active Substance: IPRATROPIUM BROMIDE
     Dosage: UNK, QD
     Route: 065
  52. ARANESP [Suspect]
     Active Substance: DARBEPOETIN ALFA
     Indication: Anaemia
     Dosage: 10 MG, Q2WEEKS
     Route: 042
  53. ARANESP [Suspect]
     Active Substance: DARBEPOETIN ALFA
     Dosage: 0.71 UG, 1/WEEK
     Route: 042
  54. ARANESP [Suspect]
     Active Substance: DARBEPOETIN ALFA
     Dosage: 10 UG, CYCLIC
     Route: 042
  55. ARANESP [Suspect]
     Active Substance: DARBEPOETIN ALFA
     Dosage: 0.71 UG, BIW
     Route: 042
  56. ARANESP [Suspect]
     Active Substance: DARBEPOETIN ALFA
     Dosage: 10 UG, Q2WK
     Route: 042
  57. ARANESP [Suspect]
     Active Substance: DARBEPOETIN ALFA
     Dosage: 10 UNK
     Route: 042
  58. ARANESP [Suspect]
     Active Substance: DARBEPOETIN ALFA
     Dosage: 1.42 MICROGRAM, QWK
     Route: 042
  59. ARANESP [Suspect]
     Active Substance: DARBEPOETIN ALFA
     Dosage: 20 MILLIGRAM, QWK
     Route: 042
  60. ARANESP [Suspect]
     Active Substance: DARBEPOETIN ALFA
     Dosage: 0.71 UG, 1/WEEK
     Route: 065
  61. ARANESP [Suspect]
     Active Substance: DARBEPOETIN ALFA
     Dosage: 0.71 UG, QD
     Route: 042
  62. ARANESP [Suspect]
     Active Substance: DARBEPOETIN ALFA
     Dosage: 0.71 UG, 2/WEEK, QOW
     Route: 042
  63. ARANESP [Suspect]
     Active Substance: DARBEPOETIN ALFA
     Dosage: 0.714 UG, QOW
     Route: 042
  64. ARANESP [Suspect]
     Active Substance: DARBEPOETIN ALFA
     Dosage: 10 UG, QOW
     Route: 042
  65. ARANESP [Suspect]
     Active Substance: DARBEPOETIN ALFA
     Dosage: 0.71 UG, 2/WEEK, QOW
     Route: 042
  66. ARANESP [Suspect]
     Active Substance: DARBEPOETIN ALFA
     Dosage: 10 UG, QOW
     Route: 042
  67. ARANESP [Suspect]
     Active Substance: DARBEPOETIN ALFA
     Dosage: 10 MG QOW
     Route: 042
  68. TRELEGY ELLIPTA [Suspect]
     Active Substance: FLUTICASONE FUROATE\UMECLIDINIUM BROMIDE\VILANTEROL TRIFENATATE
     Indication: Product used for unknown indication
     Dosage: UNKNOWN
     Route: 055
  69. FIASP [Suspect]
     Active Substance: INSULIN ASPART
     Indication: Diabetes mellitus
     Dosage: UNKNOWN
     Route: 065
  70. FIASP [Suspect]
     Active Substance: INSULIN ASPART
     Dosage: UNKNOWN
     Route: 058
  71. FIASP [Suspect]
     Active Substance: INSULIN ASPART
     Dosage: UNKNOWN
     Route: 048
  72. FIASP [Suspect]
     Active Substance: INSULIN ASPART
     Dosage: UNKNOWN
     Route: 058
  73. FIASP [Suspect]
     Active Substance: INSULIN ASPART
     Dosage: UNKNOWN
     Route: 058
  74. FIASP [Suspect]
     Active Substance: INSULIN ASPART
     Dosage: UNKNOWN
     Route: 058
  75. CARBOHYDRATES\FATTY ACIDS\MINERALS\PROTEIN\VITAMINS [Suspect]
     Active Substance: CARBOHYDRATES\FATTY ACIDS\MINERALS\PROTEIN\VITAMINS
     Indication: Vitamin D
     Dosage: 5 MG, QD
     Route: 042
  76. CARBOHYDRATES\FATTY ACIDS\MINERALS\PROTEIN\VITAMINS [Suspect]
     Active Substance: CARBOHYDRATES\FATTY ACIDS\MINERALS\PROTEIN\VITAMINS
     Indication: Vitamin supplementation
     Dosage: UNK
     Route: 065
  77. ALBUTEROL SULFATE [Suspect]
     Active Substance: ALBUTEROL SULFATE
     Indication: Chronic obstructive pulmonary disease
     Dosage: UNK UNK, QID
     Route: 055
  78. ALBUTEROL SULFATE [Suspect]
     Active Substance: ALBUTEROL SULFATE
     Dosage: 4 DF, Q6HR
  79. ALBUTEROL SULFATE [Suspect]
     Active Substance: ALBUTEROL SULFATE
     Dosage: UNK, QD
  80. ALBUTEROL SULFATE [Suspect]
     Active Substance: ALBUTEROL SULFATE
     Dosage: 1 DF, Q6HR
  81. ATROVENT [Suspect]
     Active Substance: IPRATROPIUM BROMIDE
     Indication: Dyspnoea
     Dosage: UNK UNK, QID
     Route: 050
  82. ATROVENT [Suspect]
     Active Substance: IPRATROPIUM BROMIDE
     Indication: Sleep disorder therapy
     Dosage: 4 UNK, QD
  83. ATROVENT [Suspect]
     Active Substance: IPRATROPIUM BROMIDE
     Dosage: UNK
     Route: 050
  84. ATROVENT [Suspect]
     Active Substance: IPRATROPIUM BROMIDE
     Dosage: UNK
     Route: 055
  85. ATROVENT [Suspect]
     Active Substance: IPRATROPIUM BROMIDE
     Dosage: UNK UNK, QD
     Route: 055
  86. ATROVENT [Suspect]
     Active Substance: IPRATROPIUM BROMIDE
     Dosage: UNK, Q6HR
  87. ATROVENT [Suspect]
     Active Substance: IPRATROPIUM BROMIDE
     Dosage: UNK UNK, QD
     Route: 050
  88. ATROVENT [Suspect]
     Active Substance: IPRATROPIUM BROMIDE
     Dosage: UNK UNK, Q8HR
     Route: 050
  89. ATROVENT [Suspect]
     Active Substance: IPRATROPIUM BROMIDE
     Dosage: 1 DF, Q6HR
     Route: 055
  90. ATROVENT [Suspect]
     Active Substance: IPRATROPIUM BROMIDE
     Dosage: 1 DF, Q8HR
     Route: 055
  91. ATROVENT [Suspect]
     Active Substance: IPRATROPIUM BROMIDE
     Dosage: UNK, Q4D
     Route: 055
  92. ATROVENT [Suspect]
     Active Substance: IPRATROPIUM BROMIDE
     Dosage: UNK UNK, QID
     Route: 055
  93. ALLOPURINOL [Suspect]
     Active Substance: ALLOPURINOL
     Indication: Blood uric acid increased
     Dosage: 1 DF, QD
     Route: 048
  94. ALLOPURINOL [Suspect]
     Active Substance: ALLOPURINOL
     Indication: Intentional product misuse
     Dosage: 100 MG, QD
     Route: 048
  95. ALLOPURINOL [Suspect]
     Active Substance: ALLOPURINOL
     Indication: Off label use
     Dosage: 100 MG, QD
     Route: 048
  96. ALLOPURINOL [Suspect]
     Active Substance: ALLOPURINOL
     Dosage: 1 DF, QD (1 DOSAGE FORM, QD)
     Route: 048
  97. ALLOPURINOL [Suspect]
     Active Substance: ALLOPURINOL
     Dosage: 1 DF, QD (1 DOSAGE FORM, QD)
     Route: 048
  98. ALLOPURINOL [Suspect]
     Active Substance: ALLOPURINOL
     Route: 065
  99. FURAZOLIDONE [Suspect]
     Active Substance: FURAZOLIDONE
     Indication: Product used for unknown indication
     Dosage: 12.5 MG
     Route: 042
  100. ZOCOR [Suspect]
     Active Substance: SIMVASTATIN
     Indication: Blood cholesterol increased
     Dosage: 40 MG, QD
     Route: 048
  101. ALLANTOIN [Suspect]
     Active Substance: ALLANTOIN
     Indication: Constipation
     Dosage: UNK
     Route: 065
  102. ALLANTOIN [Suspect]
     Active Substance: ALLANTOIN
     Indication: Intentional product misuse
     Dosage: 17 G, QD
     Route: 048
  103. ALLANTOIN [Suspect]
     Active Substance: ALLANTOIN
     Indication: Off label use
  104. NOREPINEPHRINE BITARTRATE [Suspect]
     Active Substance: NOREPINEPHRINE BITARTRATE
     Indication: Stress
     Dosage: 3 MILLIGRAM, QD
     Route: 048
  105. DEXTROSE\SODIUM CHLORIDE [Suspect]
     Active Substance: DEXTROSE\SODIUM CHLORIDE
     Indication: Intentional product misuse
     Dosage: 12.5 G, QD
     Route: 042
  106. DEXTROSE\SODIUM CHLORIDE [Suspect]
     Active Substance: DEXTROSE\SODIUM CHLORIDE
     Indication: Off label use
     Dosage: 12.5 MG
     Route: 042
  107. DEXTROSE\SODIUM CHLORIDE [Suspect]
     Active Substance: DEXTROSE\SODIUM CHLORIDE
     Dosage: 12.5 MG, PRN
     Route: 042
  108. NOREPINEPHRINE BITARTRATE [Suspect]
     Active Substance: NOREPINEPHRINE BITARTRATE
     Indication: Stress
     Dosage: 3 MG, QD
     Route: 048
  109. AMIODARONE [Suspect]
     Active Substance: AMIODARONE
     Indication: Ventricular fibrillation
     Dosage: 150 MG, QD
     Route: 042
  110. AMIODARONE [Suspect]
     Active Substance: AMIODARONE
     Route: 065
  111. FRAGMIN [Suspect]
     Active Substance: DALTEPARIN SODIUM
     Indication: Pulmonary embolism
     Dosage: 2.5 ML, PRN
     Route: 065
  112. FRAGMIN [Suspect]
     Active Substance: DALTEPARIN SODIUM
     Indication: Thrombosis
     Dosage: UNK
     Route: 065
  113. FRAGMIN [Suspect]
     Active Substance: DALTEPARIN SODIUM
     Indication: Product used for unknown indication
     Dosage: UNK
     Route: 048
  114. FRAGMIN [Suspect]
     Active Substance: DALTEPARIN SODIUM
     Dosage: 2.5 ML
     Route: 065
  115. FRAGMIN [Suspect]
     Active Substance: DALTEPARIN SODIUM
     Dosage: UNK
     Route: 065
  116. POLYETHYLENE GLYCOLS [Suspect]
     Active Substance: POLYETHYLENE GLYCOLS
     Indication: Constipation
     Dosage: 3 MG, 1/WEEK
     Route: 048
  117. POLYETHYLENE GLYCOLS [Suspect]
     Active Substance: POLYETHYLENE GLYCOLS
     Indication: Off label use
     Dosage: 17 G, QD
     Route: 048
  118. POLYETHYLENE GLYCOLS [Suspect]
     Active Substance: POLYETHYLENE GLYCOLS
     Indication: Product used for unknown indication
  119. SODIUM FERRIC GLUCONATE COMPLEX [Suspect]
     Active Substance: SODIUM FERRIC GLUCONATE COMPLEX
     Indication: Iron deficiency
     Dosage: 125 MILLIGRAM, 1/WK
     Route: 042
  120. SODIUM FERRIC GLUCONATE COMPLEX [Suspect]
     Active Substance: SODIUM FERRIC GLUCONATE COMPLEX
     Dosage: 4.64 MG, Q4WEEKS
     Route: 042
  121. SODIUM FERRIC GLUCONATE COMPLEX [Suspect]
     Active Substance: SODIUM FERRIC GLUCONATE COMPLEX
     Dosage: 17.85 MG, I/WK
     Route: 042
  122. SODIUM FERRIC GLUCONATE COMPLEX [Suspect]
     Active Substance: SODIUM FERRIC GLUCONATE COMPLEX
     Dosage: 125 MILLIGRAM, Q4WK
     Route: 042
  123. SODIUM FERRIC GLUCONATE COMPLEX [Suspect]
     Active Substance: SODIUM FERRIC GLUCONATE COMPLEX
     Route: 065
  124. ONDANSETRON [Suspect]
     Active Substance: ONDANSETRON
     Indication: Nausea
     Dosage: 1 DF
     Route: 065
  125. ONDANSETRON [Suspect]
     Active Substance: ONDANSETRON
     Indication: Vomiting
  126. CEFTRIAXONE [Suspect]
     Active Substance: CEFTRIAXONE
     Indication: Bacterial infection
     Dosage: 2 G, QD
     Route: 042
  127. CEFTRIAXONE [Suspect]
     Active Substance: CEFTRIAXONE
     Indication: Off label use
  128. CALCITRIOL [Suspect]
     Active Substance: CALCITRIOL
     Indication: Vitamin D
     Dosage: 0.25 UG, QD
     Route: 048
  129. OSELTAMIVIR PHOSPHATE [Suspect]
     Active Substance: OSELTAMIVIR PHOSPHATE
     Indication: Product used for unknown indication
     Dosage: 133 MILLILITER
     Route: 054
  130. BISMUTH SUBGALLATE\BUFEXAMAC\LIDOCAINE HYDROCHLORIDE\TITANIUM DIOXIDE [Suspect]
     Active Substance: BISMUTH SUBGALLATE\BUFEXAMAC\LIDOCAINE HYDROCHLORIDE\TITANIUM DIOXIDE
     Indication: Constipation
     Dosage: 133 MILLILITER, AS NECESARRY
     Route: 054
  131. BISMUTH SUBGALLATE\BUFEXAMAC\LIDOCAINE HYDROCHLORIDE\TITANIUM DIOXIDE [Suspect]
     Active Substance: BISMUTH SUBGALLATE\BUFEXAMAC\LIDOCAINE HYDROCHLORIDE\TITANIUM DIOXIDE
     Dosage: 133 MILLILITER, AS NECESARRY
     Route: 054
  132. IPRATROPIUM [Suspect]
     Active Substance: IPRATROPIUM
     Indication: Dyspnoea
     Dosage: 4 UNK, QD
     Route: 055
  133. IPRATROPIUM [Suspect]
     Active Substance: IPRATROPIUM
     Dosage: 1 DF, QD
     Route: 055
  134. IPRATROPIUM [Suspect]
     Active Substance: IPRATROPIUM
     Dosage: UNK UNK, QD
     Route: 065
  135. NOREPINEPHRINE BITARTRATE [Suspect]
     Active Substance: NOREPINEPHRINE BITARTRATE
     Indication: Stress
     Dosage: 1 DF
     Route: 048
  136. NOREPINEPHRINE BITARTRATE [Suspect]
     Active Substance: NOREPINEPHRINE BITARTRATE
     Dosage: UNK
     Route: 042
  137. NOREPINEPHRINE BITARTRATE [Suspect]
     Active Substance: NOREPINEPHRINE BITARTRATE
     Dosage: 3 MILLIGRAM, QD (ONCE A DAY)
     Route: 048
  138. UMECLIDINIUM BROMIDE [Suspect]
     Active Substance: UMECLIDINIUM BROMIDE
     Indication: Dyspnoea
     Dosage: 1 IU, QD
     Route: 048
  139. UMECLIDINIUM BROMIDE [Suspect]
     Active Substance: UMECLIDINIUM BROMIDE
     Dosage: 1 DF
     Route: 048
  140. PHYTONADIONE [Suspect]
     Active Substance: PHYTONADIONE
     Indication: Vitamin supplementation
     Dosage: 5 MG, QD (ONCE A DAY)
     Route: 042
  141. PHYTONADIONE [Suspect]
     Active Substance: PHYTONADIONE
     Dosage: 5 MG, PRN
     Route: 042
  142. PHYTONADIONE [Suspect]
     Active Substance: PHYTONADIONE
     Dosage: 5 MILLIGRAM
     Route: 017
  143. PHYTONADIONE [Suspect]
     Active Substance: PHYTONADIONE
     Dosage: 5 MILLIGRAM, QD
     Route: 017
  144. PHYTONADIONE [Suspect]
     Active Substance: PHYTONADIONE
     Dosage: 5 MG, PRN
     Route: 017
  145. SODIUM FERRIC GLUCONATE COMPLEX [Suspect]
     Active Substance: SODIUM FERRIC GLUCONATE COMPLEX
     Indication: Iron deficiency
     Dosage: UNK
     Route: 065
  146. SODIUM FERRIC GLUCONATE COMPLEX [Suspect]
     Active Substance: SODIUM FERRIC GLUCONATE COMPLEX
     Dosage: 125 MG, QD
     Route: 042
  147. SODIUM FERRIC GLUCONATE COMPLEX [Suspect]
     Active Substance: SODIUM FERRIC GLUCONATE COMPLEX
     Dosage: 4.64 MG, Q4W (EVERY 4 WEEKS)
     Route: 042
  148. SODIUM FERRIC GLUCONATE COMPLEX [Suspect]
     Active Substance: SODIUM FERRIC GLUCONATE COMPLEX
     Dosage: 17.85 MG, 1/WEEK
     Route: 042
  149. SODIUM FERRIC GLUCONATE COMPLEX [Suspect]
     Active Substance: SODIUM FERRIC GLUCONATE COMPLEX
     Dosage: 4.64 MG, Q4W (EVERY 4 WEEKS)
     Route: 042
  150. SODIUM FERRIC GLUCONATE COMPLEX [Suspect]
     Active Substance: SODIUM FERRIC GLUCONATE COMPLEX
     Dosage: 125 MG, Q4W
     Route: 042
  151. SODIUM FERRIC GLUCONATE COMPLEX [Suspect]
     Active Substance: SODIUM FERRIC GLUCONATE COMPLEX
     Dosage: 125 MG, Q4WEEKS IN SUCROSE INJECTION
     Route: 042
  152. SODIUM FERRIC GLUCONATE COMPLEX [Suspect]
     Active Substance: SODIUM FERRIC GLUCONATE COMPLEX
     Dosage: 17.85 MG
     Route: 042
  153. SODIUM FERRIC GLUCONATE COMPLEX [Suspect]
     Active Substance: SODIUM FERRIC GLUCONATE COMPLEX
     Dosage: 125 MG, Q4WEEKS IN SUCROSE INJECTION
     Route: 042
  154. MANNITOL [Suspect]
     Active Substance: MANNITOL
     Indication: Nutritional supplementation
     Dosage: 12.5 G
     Route: 042
  155. MANNITOL [Suspect]
     Active Substance: MANNITOL
     Route: 065
  156. DISTIGMINE BROMIDE [Suspect]
     Active Substance: DISTIGMINE BROMIDE
     Indication: Off label use
     Dosage: UNK
     Route: 065
  157. DISTIGMINE BROMIDE [Suspect]
     Active Substance: DISTIGMINE BROMIDE
     Indication: Dyspnoea
     Dosage: 1 IU, QD
     Route: 048
  158. DISTIGMINE BROMIDE [Suspect]
     Active Substance: DISTIGMINE BROMIDE
     Dosage: 1 IU, QD (ONCE A DAY)
     Route: 048
  159. MAALOX ANTACID [Suspect]
     Active Substance: ALUMINUM HYDROXIDE\DIMETHICONE\MAGNESIUM HYDROXIDE
     Indication: Constipation
     Dosage: 133 ML, PRN , AS NECESSARY
     Route: 054
  160. FLUTICASONE FUROATE [Suspect]
     Active Substance: FLUTICASONE FUROATE
     Indication: Dyspnoea
     Dosage: 1 IU
     Route: 048
  161. FLUTICASONE FUROATE [Suspect]
     Active Substance: FLUTICASONE FUROATE
     Indication: Nutritional supplementation
     Dosage: UNK
     Route: 065
  162. DEXTROSE\HEPARIN SODIUM [Suspect]
     Active Substance: DEXTROSE\HEPARIN SODIUM
     Indication: Intentional product misuse
     Dosage: 250 UNK
     Route: 017
  163. DEXTROSE\HEPARIN SODIUM [Suspect]
     Active Substance: DEXTROSE\HEPARIN SODIUM
     Indication: Anticoagulant therapy
     Dosage: 50 ML, 1X/DAY
     Route: 042
  164. DEXTROSE\HEPARIN SODIUM [Suspect]
     Active Substance: DEXTROSE\HEPARIN SODIUM
     Dosage: 50 ML
     Route: 017
  165. DEXTROSE\HEPARIN SODIUM [Suspect]
     Active Substance: DEXTROSE\HEPARIN SODIUM
     Dosage: 250 ML, QD
     Route: 042
  166. DEXTROSE\HEPARIN SODIUM [Suspect]
     Active Substance: DEXTROSE\HEPARIN SODIUM
     Dosage: 50 ML, AS NECESSARY, QD
     Route: 042
  167. DEXTROSE\HEPARIN SODIUM [Suspect]
     Active Substance: DEXTROSE\HEPARIN SODIUM
     Dosage: 50 ML
     Route: 017
  168. DEXTROSE\HEPARIN SODIUM [Suspect]
     Active Substance: DEXTROSE\HEPARIN SODIUM
     Dosage: 250 ML, AS NECESSARY
     Route: 042
  169. HERBALS\PAULLINIA CUPANA SEED [Suspect]
     Active Substance: HERBALS\PAULLINIA CUPANA SEED
     Indication: Nutritional supplementation
     Dosage: 12.5 MG
     Route: 042
  170. DULCOLAX NOS [Suspect]
     Active Substance: BISACODYL OR DOCUSATE SODIUM
     Indication: Constipation
     Dosage: 10 MG, QD
     Route: 054
  171. DULCOLAX NOS [Suspect]
     Active Substance: BISACODYL OR DOCUSATE SODIUM
     Indication: Intentional product misuse
     Dosage: 10 MG, QD (ONCE A DAY)
     Route: 054
  172. DULCOLAX NOS [Suspect]
     Active Substance: BISACODYL OR DOCUSATE SODIUM
     Indication: Off label use
     Dosage: 10 MG, QD, AS NECESSARY
     Route: 054
  173. HEPARIN SODIUM IN DEXTROSE [Suspect]
     Active Substance: HEPARIN SODIUM
     Indication: Intentional product misuse
     Dosage: UNK
     Route: 065
  174. HEPARIN SODIUM IN DEXTROSE [Suspect]
     Active Substance: HEPARIN SODIUM
     Indication: Anticoagulant therapy
     Dosage: 50 UNK
     Route: 042
  175. HEPARIN SODIUM IN DEXTROSE [Suspect]
     Active Substance: HEPARIN SODIUM
     Dosage: 250 ML, QD
     Route: 042
  176. LANSOPRAZOLE [Suspect]
     Active Substance: LANSOPRAZOLE
     Indication: Off label use
     Dosage: 30 MG, QD
     Route: 048
  177. LANSOPRAZOLE [Suspect]
     Active Substance: LANSOPRAZOLE
     Indication: Antacid therapy
     Dosage: 30 MG, QD
     Route: 048
  178. LANSOPRAZOLE [Suspect]
     Active Substance: LANSOPRAZOLE
     Indication: Intentional product misuse
     Dosage: 30 MG, QD
     Route: 048
  179. LANSOPRAZOLE [Suspect]
     Active Substance: LANSOPRAZOLE
     Dosage: 30 MG, QD
     Route: 048
  180. LANSOPRAZOLE [Suspect]
     Active Substance: LANSOPRAZOLE
     Dosage: 30 MG, QD
     Route: 048
  181. LANSOPRAZOLE [Suspect]
     Active Substance: LANSOPRAZOLE
     Dosage: 30 MG, QD
     Route: 048
  182. .ALPHA.-TOCOPHEROL, DL- [Suspect]
     Active Substance: .ALPHA.-TOCOPHEROL, DL-
     Indication: Nutritional supplementation
     Dosage: 12.5 GRAM
     Route: 042
  183. DOBUTAMINE HYDROCHLORIDE [Suspect]
     Active Substance: DOBUTAMINE HYDROCHLORIDE
     Indication: Cardiogenic shock
     Dosage: UNK
     Route: 042
  184. TRESIBA [Suspect]
     Active Substance: INSULIN DEGLUDEC
     Indication: Diabetes mellitus
     Dosage: UNKNOWN
     Route: 058
  185. TRESIBA [Suspect]
     Active Substance: INSULIN DEGLUDEC
     Dosage: 1 DF, QD
     Route: 058
  186. BETAMETHASONE [Suspect]
     Active Substance: BETAMETHASONE
     Indication: Off label use
     Dosage: 10 MG AS NECESSARY
     Route: 061
  187. BETAMETHASONE [Suspect]
     Active Substance: BETAMETHASONE
     Indication: Swelling
     Dosage: UNK
     Route: 065
  188. BETAMETHASONE [Suspect]
     Active Substance: BETAMETHASONE
     Dosage: 1 DF
     Route: 061
  189. BETAMETHASONE [Suspect]
     Active Substance: BETAMETHASONE
     Dosage: UNK UNK, PRN
     Route: 061
  190. XYLOMETAZOLINE HYDROCHLORIDE [Suspect]
     Active Substance: XYLOMETAZOLINE HYDROCHLORIDE
     Indication: Dyspnoea
     Dosage: 1 OTHER
     Route: 050
  191. XYLOMETAZOLINE HYDROCHLORIDE [Suspect]
     Active Substance: XYLOMETAZOLINE HYDROCHLORIDE
     Dosage: UNK
  192. XYLOMETAZOLINE HYDROCHLORIDE [Suspect]
     Active Substance: XYLOMETAZOLINE HYDROCHLORIDE
     Dosage: 1 DF, QD
     Route: 065
  193. HEPARIN CALCIUM [Suspect]
     Active Substance: HEPARIN CALCIUM
     Indication: Anticoagulant therapy
     Dosage: 50 ML, PRN, AS NECESSARY
     Route: 042
  194. FENOTEROL\IPRATROPIUM [Suspect]
     Active Substance: FENOTEROL\IPRATROPIUM
     Indication: Dyspnoea
     Dosage: 4 UNK, QD
     Route: 065
  195. FENOTEROL\IPRATROPIUM [Suspect]
     Active Substance: FENOTEROL\IPRATROPIUM
     Dosage: 1 DF, QD
     Route: 065
  196. FENOTEROL\IPRATROPIUM [Suspect]
     Active Substance: FENOTEROL\IPRATROPIUM
     Dosage: 1 DF, TID
     Route: 050
  197. FENOTEROL\IPRATROPIUM [Suspect]
     Active Substance: FENOTEROL\IPRATROPIUM
     Dosage: 1 DOSAGE FORM,Q8H,QD
     Route: 050
  198. OTRIVIN [Suspect]
     Active Substance: XYLOMETAZOLINE
     Indication: Dyspnoea
     Dosage: UNK
     Route: 055
  199. CHLORAMPHENICOL\HYDROCORTISONE ACETATE\METRONIDAZOLE\NATAMYCIN [Suspect]
     Active Substance: CHLORAMPHENICOL\HYDROCORTISONE ACETATE\METRONIDAZOLE\NATAMYCIN
     Indication: Bacterial infection
     Dosage: 1500 MG
     Route: 065
  200. CALCIUM CHLORIDE\DEXTROSE\POTASSIUM CHLORIDE\SODIUM CHLORIDE [Suspect]
     Active Substance: CALCIUM CHLORIDE\DEXTROSE\POTASSIUM CHLORIDE\SODIUM CHLORIDE
     Indication: Nutritional supplementation
     Dosage: UNKNOWN
     Route: 065
  201. SODIUM PHOSPHATE, MONOBASIC [Suspect]
     Active Substance: SODIUM PHOSPHATE, MONOBASIC
     Indication: Constipation
     Dosage: 133 ML, PRN
     Route: 054
  202. UMECLIDINIUM BROMIDE\VILANTEROL TRIFENATATE [Suspect]
     Active Substance: UMECLIDINIUM BROMIDE\VILANTEROL TRIFENATATE
     Indication: Dyspnoea
     Dosage: 1 IU, QD
     Route: 048
  203. UMECLIDINIUM BROMIDE\VILANTEROL TRIFENATATE [Suspect]
     Active Substance: UMECLIDINIUM BROMIDE\VILANTEROL TRIFENATATE
     Dosage: 1 IU
     Route: 048
  204. ACETAMINOPHEN [Suspect]
     Active Substance: ACETAMINOPHEN
     Indication: Analgesic therapy
     Dosage: 650 MG, QD
     Route: 048
  205. VILANTEROL TRIFENATATE [Suspect]
     Active Substance: VILANTEROL TRIFENATATE
     Indication: Dyspnoea
     Dosage: 1 IU
     Route: 048
  206. VILANTEROL TRIFENATATE [Suspect]
     Active Substance: VILANTEROL TRIFENATATE
     Dosage: 1 IU
     Route: 048
  207. ALBUTEROL [Suspect]
     Active Substance: ALBUTEROL
     Indication: Chronic obstructive pulmonary disease
     Dosage: 1 DOSAGE FORM
     Route: 055
  208. ALBUTEROL [Suspect]
     Active Substance: ALBUTEROL
     Dosage: 1 DOSAGE FORM QID
     Route: 055
  209. ALBUTEROL [Suspect]
     Active Substance: ALBUTEROL
     Dosage: UNK, (PER 6 HOURS)
     Route: 055
  210. ALBUTEROL [Suspect]
     Active Substance: ALBUTEROL
     Dosage: UNK UNK, QD
  211. VILANTEROL TRIFENATATE [Suspect]
     Active Substance: VILANTEROL TRIFENATATE
     Indication: Dyspnoea
     Dosage: 1 UNK
     Route: 065
  212. VILANTEROL TRIFENATATE [Suspect]
     Active Substance: VILANTEROL TRIFENATATE
     Dosage: 1 IU, QD
     Route: 048
  213. METAMIZOLE SODIUM [Suspect]
     Active Substance: METAMIZOLE SODIUM
     Indication: Vitamin supplementation
     Dosage: 5 MG, QD
     Route: 042
  214. METAMIZOLE SODIUM [Suspect]
     Active Substance: METAMIZOLE SODIUM
     Dosage: 5 MG, QD (ONCE A DAY)
     Route: 042
  215. HYDROMORPHONE HYDROCHLORIDE [Suspect]
     Active Substance: HYDROMORPHONE HYDROCHLORIDE
     Indication: Analgesic therapy
     Dosage: 6 MG, Q6HR
     Route: 058
  216. HYDROMORPHONE HYDROCHLORIDE [Suspect]
     Active Substance: HYDROMORPHONE HYDROCHLORIDE
     Dosage: 1 MG, Q4HR
     Route: 058
  217. HYDROMORPHONE HYDROCHLORIDE [Suspect]
     Active Substance: HYDROMORPHONE HYDROCHLORIDE
     Dosage: 1 MG, QD
     Route: 058
  218. HYDROMORPHONE HYDROCHLORIDE [Suspect]
     Active Substance: HYDROMORPHONE HYDROCHLORIDE
     Dosage: 1 MG EVERY 6 DAYS
     Route: 058
  219. HERBALS [Suspect]
     Active Substance: HERBALS
     Indication: Nutritional supplementation
     Dosage: 12.5 G, PRN
     Route: 042
  220. PREVACID [Suspect]
     Active Substance: LANSOPRAZOLE
     Indication: Antacid therapy
     Dosage: 30 MG, QD
     Route: 065
  221. SIMVASTATIN [Suspect]
     Active Substance: SIMVASTATIN
     Indication: Off label use
     Dosage: 40 MG, QD (ONCE A DAY)
     Route: 048
  222. SIMVASTATIN [Suspect]
     Active Substance: SIMVASTATIN
     Indication: Intentional product misuse
  223. SIMVASTATIN [Suspect]
     Active Substance: SIMVASTATIN
     Indication: Blood cholesterol increased
  224. SIMVASTATIN [Suspect]
     Active Substance: SIMVASTATIN
     Indication: Vitamin supplementation
  225. HEPARIN SODIUM [Suspect]
     Active Substance: HEPARIN SODIUM
     Indication: Intentional product misuse
     Dosage: 250 ML, AS NEEDED
     Route: 042
  226. HEPARIN SODIUM [Suspect]
     Active Substance: HEPARIN SODIUM
     Indication: Anticoagulant therapy
     Dosage: 50 ML, QD
     Route: 065
  227. HEPARIN SODIUM [Suspect]
     Active Substance: HEPARIN SODIUM
     Indication: Off label use
     Dosage: 50 ML (50 MILLILITER )
     Route: 017
  228. HEPARIN SODIUM [Suspect]
     Active Substance: HEPARIN SODIUM
     Dosage: 50 ML, AS NECESSARY
     Route: 042
  229. HEPARIN SODIUM [Suspect]
     Active Substance: HEPARIN SODIUM
     Dosage: 50 ML, QD
     Route: 042
  230. UNSPECIFIED INGREDIENT [Suspect]
     Active Substance: UNSPECIFIED INGREDIENT
     Indication: Dyspnoea
     Dosage: 1 IU
     Route: 048
  231. UNSPECIFIED INGREDIENT [Suspect]
     Active Substance: UNSPECIFIED INGREDIENT
     Dosage: 1 IU
     Route: 048
  232. FOSRENOL [Suspect]
     Active Substance: LANTHANUM CARBONATE
     Indication: Hyperphosphataemia
     Dosage: 500 MG, UNK
     Route: 048
  233. FOSRENOL [Suspect]
     Active Substance: LANTHANUM CARBONATE
     Indication: Off label use
     Dosage: 500 MG, PRN
     Route: 048
  234. FOSRENOL [Suspect]
     Active Substance: LANTHANUM CARBONATE
     Indication: Blood phosphorus increased
     Dosage: 500 MG, QD
     Route: 048
  235. SODIUM PHOSPHATE, MONOBASIC [Suspect]
     Active Substance: SODIUM PHOSPHATE, MONOBASIC
     Indication: Constipation
     Dosage: 133 ML, AS NECESSARY
     Route: 054
  236. AMIODARONE HYDROCHLORIDE [Suspect]
     Active Substance: AMIODARONE HYDROCHLORIDE
     Indication: Drug therapy
     Dosage: 150 MG, QD
     Route: 042
  237. AMIODARONE HYDROCHLORIDE [Suspect]
     Active Substance: AMIODARONE HYDROCHLORIDE
     Indication: Ventricular fibrillation
     Dosage: UNK, QD
     Route: 042
  238. ALBUTEROL SULFATE [Suspect]
     Active Substance: ALBUTEROL SULFATE
     Indication: Intentional product misuse
     Dosage: UNK
     Route: 065
  239. ALBUTEROL SULFATE [Suspect]
     Active Substance: ALBUTEROL SULFATE
     Indication: Chronic obstructive pulmonary disease
     Dosage: UNK UNK, Q6HR
     Route: 050
  240. ALBUTEROL SULFATE [Suspect]
     Active Substance: ALBUTEROL SULFATE
     Indication: Off label use
     Dosage: UNK, Q6HR
     Route: 055
  241. ALBUTEROL SULFATE [Suspect]
     Active Substance: ALBUTEROL SULFATE
     Dosage: 4 DF, Q6HR
     Route: 065
  242. ALBUTEROL SULFATE [Suspect]
     Active Substance: ALBUTEROL SULFATE
     Dosage: 4 DF, QD
     Route: 065
  243. ALBUTEROL SULFATE [Suspect]
     Active Substance: ALBUTEROL SULFATE
     Dosage: UNK, Q6HR
     Route: 055
  244. ALBUTEROL SULFATE [Suspect]
     Active Substance: ALBUTEROL SULFATE
     Dosage: 1 DOSAGE FORM, QID UNK
     Route: 055
  245. ALBUTEROL SULFATE [Suspect]
     Active Substance: ALBUTEROL SULFATE
     Dosage: 1 DF
  246. ALBUTEROL SULFATE [Suspect]
     Active Substance: ALBUTEROL SULFATE
     Dosage: 1 DF
     Route: 055
  247. AMMONIUM CHLORIDE [Suspect]
     Active Substance: AMMONIUM CHLORIDE
     Indication: Thrombosis
     Dosage: 2.5 ML, PRN
     Route: 048
  248. AMMONIUM CHLORIDE [Suspect]
     Active Substance: AMMONIUM CHLORIDE
     Dosage: 2.5 ML, PRN
     Route: 048
  249. AMMONIUM CHLORIDE [Suspect]
     Active Substance: AMMONIUM CHLORIDE
     Dosage: 2.5 ML, PRN
     Route: 048
  250. AMMONIUM CHLORIDE [Suspect]
     Active Substance: AMMONIUM CHLORIDE
     Dosage: 2.5 ML, AS NECESSARY
     Route: 048
  251. DISTIGMINE BROMIDE [Suspect]
     Active Substance: DISTIGMINE BROMIDE
     Indication: Dyspnoea
     Dosage: 1 IU, QD
     Route: 048
  252. DISTIGMINE BROMIDE [Suspect]
     Active Substance: DISTIGMINE BROMIDE
     Route: 065
  253. HYDROMORPHONE [Suspect]
     Active Substance: HYDROMORPHONE
     Indication: Analgesic therapy
     Dosage: 6 MG, QID
     Route: 058
  254. HYDROMORPHONE [Suspect]
     Active Substance: HYDROMORPHONE
     Dosage: 6 MG, Q6HR (EVERY 6 HOURS)
     Route: 058
  255. HYDROMORPHONE [Suspect]
     Active Substance: HYDROMORPHONE
     Dosage: 6 MG, Q4HR
     Route: 058
  256. HYDROMORPHONE [Suspect]
     Active Substance: HYDROMORPHONE
     Dosage: 6 MG
     Route: 058
  257. HYDROMORPHONE [Suspect]
     Active Substance: HYDROMORPHONE
     Dosage: 1 MG, Q4HR (EVERY 4 HOURS)
     Route: 058
  258. HYDROMORPHONE [Suspect]
     Active Substance: HYDROMORPHONE
     Dosage: 6 MG, Q6HR (QID)
     Route: 058
  259. HYDROMORPHONE [Suspect]
     Active Substance: HYDROMORPHONE
     Dosage: 96 MG, QD
     Route: 058
  260. HYDROMORPHONE [Suspect]
     Active Substance: HYDROMORPHONE
     Dosage: 17 UNK
     Route: 065
  261. HYDROMORPHONE [Suspect]
     Active Substance: HYDROMORPHONE
     Dosage: 1 MG, Q4HR (EVERY 4 HOURS)
     Route: 058
  262. HYDROMORPHONE [Suspect]
     Active Substance: HYDROMORPHONE
     Dosage: 24 MG, Q4HR
     Route: 058
  263. HYDROMORPHONE [Suspect]
     Active Substance: HYDROMORPHONE
     Dosage: 1 MG, QD
     Route: 058
  264. HYDROMORPHONE [Suspect]
     Active Substance: HYDROMORPHONE
     Route: 065
  265. GABAPENTIN [Suspect]
     Active Substance: GABAPENTIN
     Indication: Intentional product misuse
     Dosage: 100 MG, QD
     Route: 048
  266. GABAPENTIN [Suspect]
     Active Substance: GABAPENTIN
     Indication: Neuralgia
     Dosage: UNK
     Route: 065
  267. GABAPENTIN [Suspect]
     Active Substance: GABAPENTIN
     Indication: Off label use
     Dosage: 100 MG, QD (100 MILLIGRAM, QD)
     Route: 048
  268. NOREPINEPHRINE [Suspect]
     Active Substance: NOREPINEPHRINE
     Indication: Off label use
     Dosage: 1 DF, QD
     Route: 048
  269. NOREPINEPHRINE [Suspect]
     Active Substance: NOREPINEPHRINE
     Indication: Stress
     Dosage: UNKNOWN
     Route: 065
  270. NOREPINEPHRINE [Suspect]
     Active Substance: NOREPINEPHRINE
     Indication: Intentional product misuse
     Dosage: 1 DF, QD
     Route: 042
  271. NOREPINEPHRINE [Suspect]
     Active Substance: NOREPINEPHRINE
     Dosage: UNK
     Route: 065
  272. NOREPINEPHRINE [Suspect]
     Active Substance: NOREPINEPHRINE
     Dosage: UNKNOWN
     Route: 065
  273. NOREPINEPHRINE [Suspect]
     Active Substance: NOREPINEPHRINE
     Route: 065
  274. LUTEIN [Suspect]
     Active Substance: LUTEIN
     Indication: Nutritional supplementation
     Dosage: 12.5 G, AS NEEDED
     Route: 042
  275. IPRATROPIUM [Suspect]
     Active Substance: IPRATROPIUM
     Indication: Dyspnoea
     Dosage: 1 UNK
  276. IPRATROPIUM [Suspect]
     Active Substance: IPRATROPIUM
     Dosage: UNK
     Route: 050
  277. IPRATROPIUM [Suspect]
     Active Substance: IPRATROPIUM
     Dosage: 1 DF, QD
     Route: 065
  278. AMIODARONE HYDROCHLORIDE [Suspect]
     Active Substance: AMIODARONE HYDROCHLORIDE
     Indication: Off label use
     Dosage: 150 MG, QD
     Route: 042
  279. AMIODARONE HYDROCHLORIDE [Suspect]
     Active Substance: AMIODARONE HYDROCHLORIDE
     Indication: Drug therapy
     Dosage: 150 MG, QD (ONCE A DAY)
     Route: 042
  280. AMIODARONE HYDROCHLORIDE [Suspect]
     Active Substance: AMIODARONE HYDROCHLORIDE
     Indication: Ventricular fibrillation
     Dosage: UNK
     Route: 042
  281. HERBALS [Suspect]
     Active Substance: HERBALS
     Indication: Nutritional supplementation
     Dosage: 12.5 MG
     Route: 042
  282. FLUTICASONE PROPIONATE\SALMETEROL XINAFOATE [Suspect]
     Active Substance: FLUTICASONE PROPIONATE\SALMETEROL XINAFOATE
     Indication: Nutritional supplementation
     Dosage: UNK
     Route: 065
  283. DIETARY SUPPLEMENT [Suspect]
     Active Substance: DIETARY SUPPLEMENT
     Indication: Intentional product misuse
     Dosage: 5 MILLIGRAM, QD
     Route: 042
  284. DIETARY SUPPLEMENT [Suspect]
     Active Substance: DIETARY SUPPLEMENT
     Indication: Vitamin D
     Dosage: 5 MG, PRN
     Route: 017
  285. DIETARY SUPPLEMENT [Suspect]
     Active Substance: DIETARY SUPPLEMENT
     Indication: Vitamin supplementation
  286. DIETARY SUPPLEMENT [Suspect]
     Active Substance: DIETARY SUPPLEMENT
     Indication: Off label use
  287. MALTOSE [Suspect]
     Active Substance: MALTOSE
     Indication: Nutritional supplementation
     Dosage: 12.5 G
     Route: 042
  288. MALTOSE [Suspect]
     Active Substance: MALTOSE
     Route: 065
  289. SODIUM PICOSULFATE [Suspect]
     Active Substance: SODIUM PICOSULFATE
     Indication: Constipation
     Dosage: 10 MG
     Route: 065
  290. SODIUM PICOSULFATE [Suspect]
     Active Substance: SODIUM PICOSULFATE
     Indication: Analgesic therapy
     Dosage: 10 MG
     Route: 054
  291. SODIUM PICOSULFATE [Suspect]
     Active Substance: SODIUM PICOSULFATE
     Dosage: 10 MG, PRN
     Route: 065
  292. SODIUM PICOSULFATE [Suspect]
     Active Substance: SODIUM PICOSULFATE
     Dosage: 10MG, AS NECESSARY
     Route: 065
  293. SODIUM PICOSULFATE [Suspect]
     Active Substance: SODIUM PICOSULFATE
     Dosage: 10 MG, PRN
     Route: 054
  294. SODIUM PICOSULFATE [Suspect]
     Active Substance: SODIUM PICOSULFATE
     Route: 065
  295. SODIUM CITRATE [Suspect]
     Active Substance: SODIUM CITRATE
     Indication: Thrombosis
     Dosage: 2.5 MG, QD
     Route: 065
  296. SODIUM CITRATE [Suspect]
     Active Substance: SODIUM CITRATE
     Dosage: 2.5 ML, NECESSARY (4GM/100ML SOLUTION UNASSIGNED)
     Route: 065
  297. SODIUM CITRATE [Suspect]
     Active Substance: SODIUM CITRATE
     Dosage: 2.5 ML, PRN
     Route: 065
  298. SODIUM CITRATE [Suspect]
     Active Substance: SODIUM CITRATE
     Dosage: 2.5 ML AS NECESSARY
     Route: 065
  299. SODIUM CITRATE [Suspect]
     Active Substance: SODIUM CITRATE
     Dosage: 2.5 ML, QD
     Route: 065
  300. SODIUM CITRATE [Suspect]
     Active Substance: SODIUM CITRATE
     Route: 065
  301. METRONIDAZOLE [Suspect]
     Active Substance: METRONIDAZOLE
     Indication: Intentional product misuse
     Dosage: 500 MG, Q8H, 1500 MG QD
     Route: 048
  302. METRONIDAZOLE [Suspect]
     Active Substance: METRONIDAZOLE
     Indication: Bacterial infection
     Dosage: 500 MG, QD
     Route: 048
  303. METRONIDAZOLE [Suspect]
     Active Substance: METRONIDAZOLE
     Indication: Off label use
     Dosage: 500 MG, Q8H (500 MG, Q8H, 1500 MG QD)
     Route: 048
  304. METRONIDAZOLE [Suspect]
     Active Substance: METRONIDAZOLE
     Dosage: 500 MG, Q8H, 1500 MG QD
     Route: 048
  305. METRONIDAZOLE [Suspect]
     Active Substance: METRONIDAZOLE
     Dosage: 1500 MG, QD
     Route: 048
  306. DEXTROSE [Suspect]
     Active Substance: DEXTROSE
     Indication: Nutritional supplementation
     Dosage: 12.5 GRAM
     Route: 042
  307. DEXTROSE [Suspect]
     Active Substance: DEXTROSE
     Route: 065
  308. METAMIZOLE SODIUM [Suspect]
     Active Substance: METAMIZOLE SODIUM
     Indication: Vitamin supplementation
     Dosage: 5 MG
     Route: 042
  309. METAMIZOLE SODIUM [Suspect]
     Active Substance: METAMIZOLE SODIUM
     Indication: Intentional product misuse
     Dosage: 5 MG
     Route: 042
  310. METAMIZOLE SODIUM [Suspect]
     Active Substance: METAMIZOLE SODIUM
     Indication: Off label use
     Route: 065
  311. BETAMETHASONE DIPROPIONATE\CLIOQUINOL [Suspect]
     Active Substance: BETAMETHASONE DIPROPIONATE\CLIOQUINOL
     Indication: Swelling
     Dosage: UNK, QD
     Route: 061
  312. BETAMETHASONE DIPROPIONATE\CLIOQUINOL [Suspect]
     Active Substance: BETAMETHASONE DIPROPIONATE\CLIOQUINOL
     Dosage: UNK, QD
     Route: 061
  313. BETAMETHASONE DIPROPIONATE\CLIOQUINOL [Suspect]
     Active Substance: BETAMETHASONE DIPROPIONATE\CLIOQUINOL
     Dosage: UNK UNK QD
     Route: 065
  314. FLUTICASONE FUROATE\VILANTEROL TRIFENATATE [Suspect]
     Active Substance: FLUTICASONE FUROATE\VILANTEROL TRIFENATATE
     Indication: Intentional product misuse
     Dosage: 1 INTERNATIONAL UNIT, QD
     Route: 048
  315. FLUTICASONE FUROATE\VILANTEROL TRIFENATATE [Suspect]
     Active Substance: FLUTICASONE FUROATE\VILANTEROL TRIFENATATE
     Indication: Dyspnoea
     Dosage: UNKNOWN
     Route: 065
  316. FLUTICASONE FUROATE\VILANTEROL TRIFENATATE [Suspect]
     Active Substance: FLUTICASONE FUROATE\VILANTEROL TRIFENATATE
     Indication: Off label use
  317. FLUTICASONE FUROATE\VILANTEROL TRIFENATATE [Suspect]
     Active Substance: FLUTICASONE FUROATE\VILANTEROL TRIFENATATE
     Indication: Nutritional supplementation
  318. VASOPRESSIN [Suspect]
     Active Substance: VASOPRESSIN
     Indication: Drug therapy
     Dosage: UNKNOWN
     Route: 017
  319. VASOPRESSIN [Suspect]
     Active Substance: VASOPRESSIN
     Dosage: UNKNOWN
     Route: 042
  320. VASOPRESSIN [Suspect]
     Active Substance: VASOPRESSIN
     Dosage: 250 ML, QD
     Route: 042
  321. VASOPRESSIN [Suspect]
     Active Substance: VASOPRESSIN
     Dosage: 50 MILLILITER, ONCE A DAY
     Route: 042
  322. VASOPRESSIN [Suspect]
     Active Substance: VASOPRESSIN
     Dosage: 250 MILLILITER, QD (ONCE A DAY)
     Route: 042
  323. MAGNESIUM TRISILICATE [Suspect]
     Active Substance: MAGNESIUM TRISILICATE
     Indication: Constipation
     Dosage: 133 ML, PRN, AS NECESSARY
     Route: 065
  324. UNSPECIFIED INGREDIENT [Suspect]
     Active Substance: UNSPECIFIED INGREDIENT
     Indication: Anticoagulant therapy
     Dosage: 250 ML, QD
     Route: 042
  325. INSULIN DEGLUDEC [Suspect]
     Active Substance: INSULIN DEGLUDEC
     Indication: Diabetes mellitus
     Dosage: 1 DF, QD
     Route: 058
  326. INSULIN DEGLUDEC [Suspect]
     Active Substance: INSULIN DEGLUDEC
     Route: 065
  327. MAGNESIUM OXIDE [Suspect]
     Active Substance: MAGNESIUM OXIDE
     Indication: Constipation
     Dosage: 133 ML, AS NECESSARY
     Route: 065
  328. BISACODYL [Suspect]
     Active Substance: BISACODYL
     Indication: Drug therapy
     Dosage: 10 MG, QD
     Route: 054
  329. BISACODYL [Suspect]
     Active Substance: BISACODYL
     Indication: Ventricular fibrillation
     Dosage: 10 MG, PRN
     Route: 042
  330. BISACODYL [Suspect]
     Active Substance: BISACODYL
     Indication: Constipation
     Dosage: 10 MG, PRN, AS NECESSARY
     Route: 054
  331. BISACODYL [Suspect]
     Active Substance: BISACODYL
     Dosage: 10 MG, PRN
     Route: 065
  332. CEFTRIAXONE SODIUM [Suspect]
     Active Substance: CEFTRIAXONE SODIUM
     Indication: Bacterial infection
     Dosage: 2 GRAM, QD
     Route: 042
  333. CEFTRIAXONE SODIUM [Suspect]
     Active Substance: CEFTRIAXONE SODIUM
     Dosage: 2 G, QD (2 GRAM, QD)
     Route: 042
  334. MELATONIN [Suspect]
     Active Substance: MELATONIN
     Indication: Off label use
     Dosage: 3 MG, QD (ONCE A DAY)
     Route: 048
  335. MELATONIN [Suspect]
     Active Substance: MELATONIN
     Indication: Sleep disorder therapy
     Dosage: 3 MG, QD (ONCE A DAY)
     Route: 048
  336. MELATONIN [Suspect]
     Active Substance: MELATONIN
     Indication: Intentional product misuse
     Dosage: UNK
     Route: 048
  337. MELATONIN [Suspect]
     Active Substance: MELATONIN
     Dosage: UNK
     Route: 048
  338. MELATONIN [Suspect]
     Active Substance: MELATONIN
     Dosage: 3 MG, QD (ONCE A DAY)
     Route: 048
  339. MELATONIN [Suspect]
     Active Substance: MELATONIN
     Route: 065
  340. .BETA.-CAROTENE [Suspect]
     Active Substance: .BETA.-CAROTENE
     Indication: Nutritional supplementation
     Dosage: UNK
     Route: 065
  341. .BETA.-CAROTENE [Suspect]
     Active Substance: .BETA.-CAROTENE
     Dosage: 12.5 G, PRN
     Route: 042
  342. .BETA.-CAROTENE [Suspect]
     Active Substance: .BETA.-CAROTENE
     Route: 065
  343. ALBUTEROL [Suspect]
     Active Substance: ALBUTEROL
     Indication: Chronic obstructive pulmonary disease
     Route: 065
  344. ACETAMINOPHEN [Suspect]
     Active Substance: ACETAMINOPHEN
     Indication: Analgesic therapy
     Route: 065
  345. DULCOLAX (BISACODYL) [Suspect]
     Active Substance: BISACODYL
     Indication: Constipation
     Route: 065
  346. DULCOLAX (BISACODYL) [Suspect]
     Active Substance: BISACODYL
     Indication: Intentional product misuse
  347. DULCOLAX (BISACODYL) [Suspect]
     Active Substance: BISACODYL
     Indication: Off label use
  348. POLYETHYLENE GLYCOL 3350 [Suspect]
     Active Substance: POLYETHYLENE GLYCOL 3350
     Indication: Constipation
     Route: 065
  349. SODIUM ASCORBATE [Suspect]
     Active Substance: SODIUM ASCORBATE
     Indication: Constipation
     Route: 065
  350. SODIUM SULFATE [Suspect]
     Active Substance: SODIUM SULFATE
     Indication: Constipation
     Route: 065
  351. CITRIC ACID [Suspect]
     Active Substance: CITRIC ACID MONOHYDRATE
     Indication: Nutritional supplementation
     Route: 065
  352. SODIUM BICARBONATE [Suspect]
     Active Substance: SODIUM BICARBONATE
     Indication: Nutritional supplementation
     Route: 065
  353. POLYETHYLENE GLYCOLS [Suspect]
     Active Substance: POLYETHYLENE GLYCOLS
     Indication: Nutritional supplementation
     Route: 065
  354. ATROVENT [Concomitant]
     Active Substance: IPRATROPIUM BROMIDE
     Indication: Sleep disorder therapy
     Dosage: UNK
     Route: 065
  355. ATROVENT [Concomitant]
     Active Substance: IPRATROPIUM BROMIDE
     Indication: Dyspnoea
     Dosage: UNKNOWN
     Route: 050
  356. ATROVENT [Concomitant]
     Active Substance: IPRATROPIUM BROMIDE
     Dosage: UNK, Q6H
     Route: 050
  357. ATROVENT [Concomitant]
     Active Substance: IPRATROPIUM BROMIDE
     Dosage: UNK, Q8HR
     Route: 050
  358. ATROVENT [Concomitant]
     Active Substance: IPRATROPIUM BROMIDE
     Dosage: UNK
     Route: 065
  359. ATROVENT [Concomitant]
     Active Substance: IPRATROPIUM BROMIDE
     Dosage: UNK UNK, QID
     Route: 055
  360. ATROVENT [Concomitant]
     Active Substance: IPRATROPIUM BROMIDE
     Dosage: Q4D
  361. ATROVENT [Concomitant]
     Active Substance: IPRATROPIUM BROMIDE
     Dosage: EVERY 6 HOURS
     Route: 065
  362. ATROVENT [Concomitant]
     Active Substance: IPRATROPIUM BROMIDE
     Dosage: UNKNOWN
     Route: 055
  363. ATROVENT [Concomitant]
     Active Substance: IPRATROPIUM BROMIDE
     Dosage: UNK
     Route: 050
  364. ATROVENT [Concomitant]
     Active Substance: IPRATROPIUM BROMIDE
     Dosage: UNK UNK, QID
     Route: 055
  365. ATROVENT [Concomitant]
     Active Substance: IPRATROPIUM BROMIDE
     Dosage: UNK
     Route: 055
  366. ATROVENT [Concomitant]
     Active Substance: IPRATROPIUM BROMIDE
     Dosage: 1 DF, Q6HR
     Route: 055
  367. ATROVENT [Concomitant]
     Active Substance: IPRATROPIUM BROMIDE
     Dosage: UNK
     Route: 050
  368. ATROVENT [Concomitant]
     Active Substance: IPRATROPIUM BROMIDE
     Dosage: UNK, Q6H
     Route: 050
  369. ATROVENT [Concomitant]
     Active Substance: IPRATROPIUM BROMIDE
     Dosage: UNK
     Route: 050
  370. ATROVENT [Concomitant]
     Active Substance: IPRATROPIUM BROMIDE
     Dosage: UNK UNK, QID
     Route: 055
  371. DISODIUM HYDROGEN CITRATE [Concomitant]
     Active Substance: DISODIUM HYDROGEN CITRATE
     Indication: Thrombosis
     Dosage: UNKNOWN
     Route: 065
  372. DISODIUM HYDROGEN CITRATE [Concomitant]
     Active Substance: DISODIUM HYDROGEN CITRATE
     Dosage: 2.5 MILLILITER, AS NECESSARY
     Route: 065
  373. WARFARIN [Concomitant]
     Active Substance: WARFARIN
     Indication: Thrombosis
     Dosage: UNK
     Route: 048
  374. WARFARIN [Concomitant]
     Active Substance: WARFARIN
     Dosage: 2 G, QD
     Route: 048
  375. WARFARIN [Concomitant]
     Active Substance: WARFARIN
     Dosage: UNK
     Route: 048
  376. WARFARIN [Concomitant]
     Active Substance: WARFARIN
     Dosage: 2 G, QD
     Route: 048
  377. PYRIDOXINE HYDROCHLORIDE [Concomitant]
     Active Substance: PYRIDOXINE HYDROCHLORIDE
     Indication: Vitamin supplementation
     Dosage: UNKNOWN
     Route: 048
  378. VITAMIN D [Concomitant]
     Active Substance: VITAMIN D NOS
     Indication: Product used for unknown indication
     Dosage: UNK
     Route: 065
  379. SIMVASTATIN [Concomitant]
     Active Substance: SIMVASTATIN
     Indication: Blood cholesterol increased
     Dosage: UNKNOWN
     Route: 065
  380. SIMVASTATIN [Concomitant]
     Active Substance: SIMVASTATIN
     Dosage: 40 MG, QD
     Route: 048
  381. SIMVASTATIN [Concomitant]
     Active Substance: SIMVASTATIN
     Dosage: 40 MG, QD
     Route: 048
  382. SIMVASTATIN [Concomitant]
     Active Substance: SIMVASTATIN
     Dosage: 40 MG, QD
     Route: 048
  383. SODIUM PICOSULFATE [Concomitant]
     Active Substance: SODIUM PICOSULFATE
     Indication: Constipation
     Dosage: 10 MG, PRN
     Route: 054
  384. SODIUM PICOSULFATE [Concomitant]
     Active Substance: SODIUM PICOSULFATE
     Dosage: 10 MG, PRN
     Route: 054
  385. HYDROMORPHONE HYDROCHLORIDE [Concomitant]
     Active Substance: HYDROMORPHONE HYDROCHLORIDE
     Indication: Analgesic therapy
     Dosage: 24 MILLIGRAM, Q6H
     Route: 058
  386. HYDROMORPHONE HYDROCHLORIDE [Concomitant]
     Active Substance: HYDROMORPHONE HYDROCHLORIDE
     Indication: Off label use
     Dosage: 1 MILLIGRAM, QD (Q4H, Q6H)),6 MILLIGRAM, Q6H
     Route: 058
  387. HYDROMORPHONE HYDROCHLORIDE [Concomitant]
     Active Substance: HYDROMORPHONE HYDROCHLORIDE
     Indication: Intentional product misuse
     Dosage: 6 MILLIGRAM, Q6H
     Route: 058
  388. ASCORBIC ACID [Concomitant]
     Active Substance: ASCORBIC ACID
     Indication: Product used for unknown indication
     Dosage: 17 G, QD
     Route: 048
  389. ASCORBIC ACID [Concomitant]
     Active Substance: ASCORBIC ACID
     Route: 065
  390. ARANESP [Concomitant]
     Active Substance: DARBEPOETIN ALFA
     Indication: Anaemia
     Dosage: 1.42 UG, Q2WEEKS
     Route: 042
  391. ARANESP [Concomitant]
     Active Substance: DARBEPOETIN ALFA
     Dosage: 10 UG, CYCLIC
     Route: 042
  392. ARANESP [Concomitant]
     Active Substance: DARBEPOETIN ALFA
     Dosage: 10 MG QOW
     Route: 042
  393. ARANESP [Concomitant]
     Active Substance: DARBEPOETIN ALFA
     Dosage: 0.714 UG, QOW
     Route: 042
  394. ARANESP [Concomitant]
     Active Substance: DARBEPOETIN ALFA
     Dosage: 0.71 UG, 1/WEEK
     Route: 065
  395. ARANESP [Concomitant]
     Active Substance: DARBEPOETIN ALFA
     Dosage: 10 MG QOW
     Route: 042
  396. ARANESP [Concomitant]
     Active Substance: DARBEPOETIN ALFA
     Dosage: 20 MG, 1/WEEKS
     Route: 042
  397. ARANESP [Concomitant]
     Active Substance: DARBEPOETIN ALFA
     Dosage: 10 MG, Q2WEEKS
     Route: 042
  398. ARANESP [Concomitant]
     Active Substance: DARBEPOETIN ALFA
     Dosage: 10 MG, Q2WEEKS
     Route: 042
  399. ARANESP [Concomitant]
     Active Substance: DARBEPOETIN ALFA
     Dosage: 0.71 UG, Q2WEEKS
     Route: 042
  400. ARANESP [Concomitant]
     Active Substance: DARBEPOETIN ALFA
     Dosage: 0.71 UG, QD
     Route: 065
  401. ARANESP [Concomitant]
     Active Substance: DARBEPOETIN ALFA
     Dosage: 0.71 UG, 2/WEEK
     Route: 042
  402. ARANESP [Concomitant]
     Active Substance: DARBEPOETIN ALFA
     Dosage: 0.71 UG, 1/WEEK
     Route: 042
  403. DULCOLAX SP [Concomitant]
     Indication: Constipation
     Dosage: 10 MG, PRN
     Route: 054
  404. DULCOLAX SP [Concomitant]
     Dosage: 10 MG, QD
     Route: 054
  405. VASOPRESSIN [Concomitant]
     Active Substance: VASOPRESSIN
     Indication: Drug therapy
     Dosage: UNKNOWN
     Route: 065
  406. VASOPRESSIN [Concomitant]
     Active Substance: VASOPRESSIN
     Dosage: THERAPY START DATE ASKU, THERAPY END DATE ASKU
     Route: 042
  407. VASOPRESSIN [Concomitant]
     Active Substance: VASOPRESSIN
     Dosage: UNKNOWN
     Route: 042
  408. VASOPRESSIN [Concomitant]
     Active Substance: VASOPRESSIN
     Dosage: UNKNOWN
     Route: 042
  409. VASOPRESSIN [Concomitant]
     Active Substance: VASOPRESSIN
     Dosage: UNKNOWN
     Route: 065
  410. VASOPRESSIN [Concomitant]
     Active Substance: VASOPRESSIN
     Dosage: 50 ML, QD
     Route: 042
  411. .BETA.-CAROTENE [Concomitant]
     Active Substance: .BETA.-CAROTENE
     Indication: Nutritional supplementation
     Dosage: 12.5 G, PRN
     Route: 042
  412. HYDROMORPHONE [Concomitant]
     Active Substance: HYDROMORPHONE
     Indication: Analgesic therapy
     Dosage: 6 MILLIGRAM FOUR TIMES PER DAY
     Route: 058
  413. HYDROMORPHONE [Concomitant]
     Active Substance: HYDROMORPHONE
     Dosage: 6 MG, QID
     Route: 058
  414. HYDROMORPHONE [Concomitant]
     Active Substance: HYDROMORPHONE
     Dosage: 1 MILLIGRAM Q4HR
     Route: 058
  415. INSULIN ASPART [Concomitant]
     Active Substance: INSULIN ASPART
     Indication: Diabetes mellitus
     Dosage: UNK
     Route: 065
  416. INSULIN ASPART [Concomitant]
     Active Substance: INSULIN ASPART
     Dosage: UNK
     Route: 058
  417. INSULIN ASPART [Concomitant]
     Active Substance: INSULIN ASPART
     Dosage: UNK
     Route: 065
  418. INSULIN ASPART [Concomitant]
     Active Substance: INSULIN ASPART
     Dosage: UNK
     Route: 058
  419. INSULIN ASPART [Concomitant]
     Active Substance: INSULIN ASPART
     Dosage: UNK
     Route: 065
  420. INSULIN ASPART [Concomitant]
     Active Substance: INSULIN ASPART
     Dosage: UNK
     Route: 058
  421. INSULIN ASPART [Concomitant]
     Active Substance: INSULIN ASPART
     Dosage: UNK
     Route: 065
  422. INSULIN ASPART [Concomitant]
     Active Substance: INSULIN ASPART
     Dosage: UNK
     Route: 058
  423. INSULIN ASPART [Concomitant]
     Active Substance: INSULIN ASPART
     Dosage: UNK
     Route: 058
  424. INSULIN ASPART [Concomitant]
     Active Substance: INSULIN ASPART
     Dosage: UNK
     Route: 065
  425. INSULIN ASPART [Concomitant]
     Active Substance: INSULIN ASPART
     Route: 065
  426. DEXTROSE [Concomitant]
     Active Substance: DEXTROSE
     Indication: Nutritional supplementation
     Dosage: 12.5 G, QD
     Route: 065
  427. DEXTROSE [Concomitant]
     Active Substance: DEXTROSE
     Dosage: 12.5 G, PRN
     Route: 042
  428. DEXTROSE [Concomitant]
     Active Substance: DEXTROSE
     Dosage: 12.5 MG
     Route: 042
  429. DEXTROSE [Concomitant]
     Active Substance: DEXTROSE
     Dosage: 12.5 G, PRN
     Route: 042
  430. DEXTROSE [Concomitant]
     Active Substance: DEXTROSE
     Dosage: 12.5 G UNK
     Route: 065
  431. DALTEPARIN SODIUM [Concomitant]
     Active Substance: DALTEPARIN SODIUM
     Indication: Pulmonary embolism
     Dosage: UNK
     Route: 065
  432. CALCITRIOL [Concomitant]
     Active Substance: CALCITRIOL
     Indication: Vitamin D
     Dosage: 0.25 UG, QD
     Route: 048
  433. CALCITRIOL [Concomitant]
     Active Substance: CALCITRIOL
     Dosage: 0.25 UG, QD
     Route: 048
  434. POTASSIUM CHLORIDE [Concomitant]
     Active Substance: POTASSIUM CHLORIDE
     Indication: Constipation
     Dosage: 17 G, QD
     Route: 048
  435. DOBUTAMINE HYDROCHLORIDE [Concomitant]
     Active Substance: DOBUTAMINE HYDROCHLORIDE
     Indication: Cardiogenic shock
     Dosage: UNK
     Route: 042
  436. Novalac [Concomitant]
     Indication: Vitamin supplementation
     Dosage: 17 G, QD
     Route: 048
  437. Novalac [Concomitant]
     Indication: Constipation
  438. POTASSIUM CHLORIDE\RIBOFLAVIN 5^-PHOSPHATE SODIUM [Concomitant]
     Active Substance: POTASSIUM CHLORIDE\RIBOFLAVIN 5^-PHOSPHATE SODIUM
     Indication: Product used for unknown indication
     Dosage: 17 G, QD
     Route: 048
  439. DISODIUM HYDROGEN CITRATE [Concomitant]
     Active Substance: DISODIUM HYDROGEN CITRATE
     Indication: Thrombosis
     Dosage: 2.5 ML, NECESSARY (4GM/100ML SOLUTION UNASSIGNED) ANTICOAGULANT
     Route: 065
  440. SODIUM PHOSPHATE, MONOBASIC [Concomitant]
     Active Substance: SODIUM PHOSPHATE, MONOBASIC
     Indication: Constipation
     Dosage: 133 ML, PRN
     Route: 054
  441. SODIUM PHOSPHATE, MONOBASIC [Concomitant]
     Active Substance: SODIUM PHOSPHATE, MONOBASIC
     Dosage: 133 ML, PRN
     Route: 054
  442. BISACODYL [Concomitant]
     Active Substance: BISACODYL
     Indication: Constipation
     Dosage: 10 MG, PRN
     Route: 054
  443. ALBUTEROL SULFATE [Concomitant]
     Active Substance: ALBUTEROL SULFATE
     Indication: Chronic obstructive pulmonary disease
     Dosage: UNK, QD
     Route: 050
  444. AMIODARONE HYDROCHLORIDE [Concomitant]
     Active Substance: AMIODARONE HYDROCHLORIDE
     Indication: Drug therapy
     Dosage: 150 MG, QD
     Route: 042
  445. AMIODARONE HYDROCHLORIDE [Concomitant]
     Active Substance: AMIODARONE HYDROCHLORIDE
     Indication: Ventricular fibrillation
     Dosage: 150 MG, QD
     Route: 042
  446. AMIODARONE HYDROCHLORIDE [Concomitant]
     Active Substance: AMIODARONE HYDROCHLORIDE
     Indication: Intentional product misuse

REACTIONS (19)
  - Nausea [Fatal]
  - Blood phosphorus increased [Fatal]
  - Abdominal pain [Fatal]
  - Hyponatraemia [Fatal]
  - Ventricular fibrillation [Fatal]
  - Appendicolith [Fatal]
  - Vomiting [Fatal]
  - Constipation [Fatal]
  - General physical health deterioration [Fatal]
  - Ascites [Fatal]
  - Dry mouth [Recovered/Resolved]
  - Cardiogenic shock [Fatal]
  - Multiple organ dysfunction syndrome [Fatal]
  - Appendicitis [Fatal]
  - Somnolence [Recovered/Resolved]
  - Condition aggravated [Fatal]
  - Stress [Fatal]
  - Abdominal distension [Fatal]
  - Sepsis [Fatal]

NARRATIVE: CASE EVENT DATE: 20210605
